FAERS Safety Report 23110287 (Version 1)
Quarter: 2023Q4

REPORT INFORMATION
  Report Type: Spontaneous
  Country: US (occurrence: None)
  Receive Date: 20231024
  Receipt Date: 20231024
  Transmission Date: 20240110
  Serious: Yes (Hospitalization)
  Sender: FDA-Public Use
  Company Number: None

PATIENT
  Age: 60 Year
  Sex: Male
  Weight: 81 kg

DRUGS (1)
  1. PREDNISONE [Suspect]
     Active Substance: PREDNISONE
     Dates: start: 20230330

REACTIONS (3)
  - Hyperglycaemia [None]
  - Diabetes mellitus inadequate control [None]
  - IgA nephropathy [None]

NARRATIVE: CASE EVENT DATE: 20230509
